FAERS Safety Report 12750383 (Version 2)
Quarter: 2018Q3

REPORT INFORMATION
  Report Type: Spontaneous
  Country: US (occurrence: US)
  Receive Date: 20160915
  Receipt Date: 20180913
  Transmission Date: 20181010
  Serious: Yes (Hospitalization)
  Sender: FDA-Public Use
  Company Number: US-ASTELLAS-2016US002845

PATIENT
  Sex: Male

DRUGS (2)
  1. XTANDI [Suspect]
     Active Substance: ENZALUTAMIDE
     Route: 048
  2. XTANDI [Suspect]
     Active Substance: ENZALUTAMIDE
     Indication: PROSTATE CANCER
     Dosage: 160 MG, ONCE DAILY (40 MG X 4 CAPSULES)
     Route: 048
     Dates: start: 20160114

REACTIONS (9)
  - Discomfort [Unknown]
  - Abdominal pain [Unknown]
  - Headache [Unknown]
  - Back pain [Unknown]
  - Nephrolithiasis [Unknown]
  - Hot flush [Unknown]
  - Bronchitis [Recovered/Resolved]
  - Pain [Unknown]
  - Nausea [Unknown]
